FAERS Safety Report 12395567 (Version 1)
Quarter: 2016Q2

REPORT INFORMATION
  Report Type: Report from Study
  Country: US (occurrence: US)
  Receive Date: 20160523
  Receipt Date: 20160523
  Transmission Date: 20160815
  Serious: No
  Sender: FDA-Public Use
  Company Number: US-MDT-ADR-2016-00351

PATIENT
  Age: 61 Year
  Sex: Male

DRUGS (8)
  1. CLONIDINE. [Suspect]
     Active Substance: CLONIDINE
     Dosage: 85.10 MCG/DAY
     Route: 037
  2. CLONIDINE. [Suspect]
     Active Substance: CLONIDINE
     Dosage: 105.12 MCG/DAY
     Route: 037
     Dates: start: 20130509
  3. COMPOUNDED BACLOFEN [Suspect]
     Active Substance: BACLOFEN
     Dosage: 85.10 MCG/DAY
     Route: 037
     Dates: end: 20130509
  4. MORPHINE [Suspect]
     Active Substance: MORPHINE
     Dosage: 3.003 MG/DAY
     Route: 037
     Dates: start: 20130509
  5. BUPIVACAINE. [Suspect]
     Active Substance: BUPIVACAINE
     Dosage: 12.935 MG/DAY
     Route: 037
     Dates: end: 20130509
  6. BUPIVACAINE. [Suspect]
     Active Substance: BUPIVACAINE
     Dosage: 9.010 MG/DAY
     Route: 037
     Dates: start: 20130509
  7. COMPOUNDED BACLOFEN [Suspect]
     Active Substance: BACLOFEN
     Dosage: 15.017 MCG/DAY
     Route: 037
     Dates: start: 20130509
  8. HYDROMORPHONE [Suspect]
     Active Substance: HYDROMORPHONE
     Dosage: 2.5529 MG/DAY
     Route: 037
     Dates: end: 20130509

REACTIONS (3)
  - Muscular weakness [Recovered/Resolved]
  - Hypoaesthesia [Recovered/Resolved]
  - Medical device site pain [Recovered/Resolved]

NARRATIVE: CASE EVENT DATE: 2016
